FAERS Safety Report 11911036 (Version 1)
Quarter: 2016Q1

REPORT INFORMATION
  Report Type: Report from Study
  Country: US (occurrence: US)
  Receive Date: 20160112
  Receipt Date: 20160112
  Transmission Date: 20160526
  Serious: Yes (Hospitalization)
  Sender: FDA-Public Use
  Company Number: US-JNJFOC-20160102359

PATIENT
  Sex: Male
  Weight: 117.48 kg

DRUGS (1)
  1. STELARA [Suspect]
     Active Substance: USTEKINUMAB
     Indication: PSORIATIC ARTHROPATHY
     Dosage: 2 WEEKS AGO
     Route: 058
     Dates: start: 201512

REACTIONS (6)
  - Aspiration joint [Unknown]
  - Respiratory tract infection [Not Recovered/Not Resolved]
  - Vertigo [Not Recovered/Not Resolved]
  - Neck mass [Unknown]
  - Purulence [Unknown]
  - Pain [Unknown]

NARRATIVE: CASE EVENT DATE: 201512
